FAERS Safety Report 8736614 (Version 2)
Quarter: 2012Q4

REPORT INFORMATION
  Report Type: 
  Country: JP (occurrence: JP)
  Receive Date: 20120822
  Receipt Date: 20120829
  Transmission Date: 20130627
  Serious: No
  Sender: FDA-Public Use
  Company Number: JP-GLAXOSMITHKLINE-B0824202A

PATIENT
  Sex: Male

DRUGS (3)
  1. GABAPENTIN ENACARBIL [Suspect]
     Indication: PRODUCT USED FOR UNKNOWN INDICATION
     Dosage: 600MG per day
     Route: 048
     Dates: start: 20120810, end: 20120813
  2. LOXONIN [Concomitant]
     Route: 048
  3. BI-SIFROL [Concomitant]

REACTIONS (2)
  - Paraesthesia [Recovered/Resolved]
  - Tremor [Recovered/Resolved]
